FAERS Safety Report 5159035-6 (Version None)
Quarter: 2006Q4

REPORT INFORMATION
  Report Type: 
  Country: None (occurrence: None)
  Receive Date: 20061117
  Receipt Date: 20061102
  Transmission Date: 20070319
  Serious: Yes (Death, Other)
  Sender: FDA-Public Use
  Company Number: 061106-0000976

PATIENT
  Age: 24 Year
  Sex: 0

DRUGS (3)
  1. METHAMPHETAMINE HYDROCHLORIDE [Suspect]
     Indication: DRUG USE FOR UNKNOWN INDICATION
     Dosage: PO
     Route: 048
  2. LITHIUM CARBONATE [Suspect]
     Indication: DRUG USE FOR UNKNOWN INDICATION
  3. SERTRALINE HYDROCHLORIDE [Suspect]

REACTIONS (9)
  - BLOOD PRESSURE DECREASED [None]
  - CARDIAC HYPERTROPHY [None]
  - CONVULSION [None]
  - HEART RATE INCREASED [None]
  - HYPERTHERMIA [None]
  - LETHARGY [None]
  - MULTIPLE DRUG OVERDOSE INTENTIONAL [None]
  - SEROTONIN SYNDROME [None]
  - SHOCK [None]
